FAERS Safety Report 21012978 (Version 4)
Quarter: 2025Q2

REPORT INFORMATION
  Report Type: Spontaneous
  Country: US (occurrence: US)
  Receive Date: 20220627
  Receipt Date: 20250410
  Transmission Date: 20250716
  Serious: No
  Sender: SANOFI AVENTIS
  Company Number: US-SA-SAC20220620000764

PATIENT
  Age: 20 Year
  Sex: Female

DRUGS (2)
  1. DUPIXENT [Suspect]
     Active Substance: DUPILUMAB
     Indication: Dermatitis atopic
     Dosage: 300 MG, QOW
     Route: 058
     Dates: start: 20210918
  2. VRAYLAR [Concomitant]
     Active Substance: CARIPRAZINE

REACTIONS (7)
  - Dermatitis atopic [Unknown]
  - Rash [Unknown]
  - Discomfort [Unknown]
  - Sleep disorder due to a general medical condition [Unknown]
  - Product dose omission issue [Unknown]
  - Product dose omission in error [Unknown]
  - Drug ineffective [Unknown]

NARRATIVE: CASE EVENT DATE: 20220501
